FAERS Safety Report 6282234-7 (Version None)
Quarter: 2009Q3

REPORT INFORMATION
  Report Type: 
  Country: None (occurrence: None)
  Receive Date: 20090724
  Receipt Date: 20090713
  Transmission Date: 20100115
  Serious: Yes (Other)
  Sender: FDA-Public Use
  Company Number: US-WYE-H09784609

PATIENT
  Age: 15 Month
  Sex: Male
  Weight: 13.62 kg

DRUGS (2)
  1. BENEFIX [Suspect]
     Indication: FACTOR IX DEFICIENCY
     Route: 042
     Dates: start: 20090508, end: 20090615
  2. BENEFIX [Suspect]
     Route: 042
     Dates: start: 20090616, end: 20090622

REACTIONS (1)
  - FACTOR IX INHIBITION [None]
